FAERS Safety Report 12117411 (Version 1)
Quarter: 2016Q1

REPORT INFORMATION
  Report Type: Spontaneous
  Country: US (occurrence: US)
  Receive Date: 20160225
  Receipt Date: 20160225
  Transmission Date: 20160526
  Serious: No
  Sender: FDA-Public Use
  Company Number: US-FRI-1000079283

PATIENT
  Sex: Female

DRUGS (1)
  1. VIIBRYD [Suspect]
     Active Substance: VILAZODONE HYDROCHLORIDE

REACTIONS (4)
  - Night sweats [Not Recovered/Not Resolved]
  - Vulvovaginal dryness [Unknown]
  - Insomnia [Unknown]
  - Weight decreased [Unknown]

NARRATIVE: CASE EVENT DATE: 201507
